FAERS Safety Report 25205559 (Version 1)
Quarter: 2025Q2

REPORT INFORMATION
  Report Type: Spontaneous
  Country: CZ (occurrence: CZ)
  Receive Date: 20250417
  Receipt Date: 20250417
  Transmission Date: 20250716
  Serious: Yes (Hospitalization, Other)
  Sender: RANBAXY
  Company Number: CZ-ALMIRALL-CZ-2025-1010

PATIENT
  Sex: Male

DRUGS (12)
  1. TILDRAKIZUMAB [Suspect]
     Active Substance: TILDRAKIZUMAB
     Indication: Psoriasis
     Route: 058
     Dates: start: 20240122
  2. TILDRAKIZUMAB [Suspect]
     Active Substance: TILDRAKIZUMAB
     Route: 058
  3. TILDRAKIZUMAB [Suspect]
     Active Substance: TILDRAKIZUMAB
     Route: 058
  4. TILDRAKIZUMAB [Suspect]
     Active Substance: TILDRAKIZUMAB
     Route: 058
     Dates: end: 202503
  5. TILDRAKIZUMAB [Suspect]
     Active Substance: TILDRAKIZUMAB
     Route: 058
  6. EUTHYROX [Concomitant]
     Active Substance: LEVOTHYROXINE SODIUM
     Indication: Product used for unknown indication
     Route: 065
  7. FUROSEMIDE [Concomitant]
     Active Substance: FUROSEMIDE
     Indication: Product used for unknown indication
     Route: 065
  8. Potasium chloride [Concomitant]
     Indication: Product used for unknown indication
     Route: 065
  9. Milurit 300 [Concomitant]
     Indication: Product used for unknown indication
     Route: 065
  10. LINEZOLID [Concomitant]
     Active Substance: LINEZOLID
     Indication: Product used for unknown indication
     Route: 065
  11. Benemycin [Concomitant]
     Indication: Erysipelas
     Route: 065
  12. Benemycin [Concomitant]
     Indication: Sepsis

REACTIONS (3)
  - Lymphoedema [Unknown]
  - Bullous erysipelas [Unknown]
  - Treatment failure [Unknown]

NARRATIVE: CASE EVENT DATE: 20240620
